FAERS Safety Report 14424310 (Version 3)
Quarter: 2018Q1

REPORT INFORMATION
  Report Type: Report from Study
  Country: CA (occurrence: CA)
  Receive Date: 20180123
  Receipt Date: 20180215
  Transmission Date: 20180509
  Serious: Yes (Hospitalization, Other)
  Sender: FDA-Public Use
  Company Number: CA-JNJFOC-20180114423

PATIENT
  Sex: Male

DRUGS (1)
  1. DARZALEX [Suspect]
     Active Substance: DARATUMUMAB
     Indication: PLASMA CELL MYELOMA
     Route: 042
     Dates: start: 20161207, end: 20180202

REACTIONS (7)
  - Sepsis [Unknown]
  - Escherichia infection [Unknown]
  - Anxiety [Unknown]
  - Platelet count decreased [Unknown]
  - Pain [Unknown]
  - Fistula of small intestine [Unknown]
  - Mobility decreased [Unknown]
